FAERS Safety Report 19518554 (Version 3)
Quarter: 2021Q3

REPORT INFORMATION
  Report Type: Report from Study
  Country: US (occurrence: US)
  Receive Date: 20210712
  Receipt Date: 20210930
  Transmission Date: 20211014
  Serious: Yes (Other)
  Sender: FDA-Public Use
  Company Number: NVSC2021US148290

PATIENT
  Age: 59 Year
  Sex: Male
  Weight: 93.33 kg

DRUGS (1)
  1. ENTRESTO [Suspect]
     Active Substance: SACUBITRIL\VALSARTAN
     Indication: CARDIAC FAILURE CHRONIC
     Dosage: 1 DF, BID (49/51 MG)
     Route: 048
     Dates: start: 20210521

REACTIONS (4)
  - Rash pruritic [Recovering/Resolving]
  - Myocardial infarction [Unknown]
  - Weight decreased [Recovering/Resolving]
  - Hyperhidrosis [Recovering/Resolving]

NARRATIVE: CASE EVENT DATE: 202105
